FAERS Safety Report 8520156-9 (Version None)
Quarter: 2012Q3

REPORT INFORMATION
  Report Type: 
  Country: None (occurrence: None)
  Receive Date: 20120706
  Receipt Date: 20120627
  Transmission Date: 20120928
  Serious: Yes (Other)
  Sender: FDA-Public Use
  Company Number: A0982562A

PATIENT
  Age: 51 Year
  Sex: Male

DRUGS (1)
  1. ALUMINUM HYDROXIDE + MAGNESIUM CARBONATE + SODIUM ALGINATE ((ALHYD + M [Suspect]
     Dosage: 1 TEASPOON

REACTIONS (1)
  - ILEUS PARALYTIC [None]
